FAERS Safety Report 10373958 (Version 1)
Quarter: 2014Q3

REPORT INFORMATION
  Report Type: Spontaneous
  Country: US (occurrence: US)
  Receive Date: 20140809
  Receipt Date: 20140809
  Transmission Date: 20150326
  Serious: Yes (Other)
  Sender: FDA-Public Use
  Company Number: US-SA-2014SA105689

PATIENT
  Age: 51 Year
  Sex: Male

DRUGS (1)
  1. CEREZYME [Suspect]
     Active Substance: IMIGLUCERASE
     Indication: GAUCHER^S DISEASE
     Dosage: FREQUENCY- EVEY 4 WEEKS DOSE:6400 UNIT(S)
     Route: 042

REACTIONS (1)
  - Nephrolithiasis [Not Recovered/Not Resolved]
